FAERS Safety Report 7897232-7 (Version None)
Quarter: 2011Q4

REPORT INFORMATION
  Report Type: 
  Country: None (occurrence: None)
  Receive Date: 20111107
  Receipt Date: 20111101
  Transmission Date: 20120403
  Serious: Yes (Other)
  Sender: FDA-Public Use
  Company Number: VE-ELI_LILLY_AND_COMPANY-VE201109007097

PATIENT
  Age: 61 Year
  Sex: Male

DRUGS (4)
  1. HUMALOG MIX 75/25 [Suspect]
     Indication: TYPE 2 DIABETES MELLITUS
     Dosage: 30 IU, EACH MORNING
     Route: 065
     Dates: start: 20110824, end: 20110901
  2. HUMALOG MIX 75/25 [Suspect]
     Dosage: 25 IU, EACH EVENING
     Route: 065
     Dates: start: 20110824, end: 20110901
  3. HUMALOG MIX 75/25 [Suspect]
     Dosage: 25 IU, EACH EVENING
     Route: 065
     Dates: start: 20110901
  4. HUMALOG MIX 75/25 [Suspect]
     Dosage: 25 IU, EACH MORNING
     Route: 065
     Dates: start: 20110901

REACTIONS (5)
  - PALLOR [None]
  - HYPERHIDROSIS [None]
  - HYPOGLYCAEMIC UNCONSCIOUSNESS [None]
  - DIZZINESS [None]
  - FATIGUE [None]
